FAERS Safety Report 10241851 (Version 1)
Quarter: 2014Q2

REPORT INFORMATION
  Report Type: Spontaneous
  Country: US (occurrence: US)
  Receive Date: 20140617
  Receipt Date: 20140617
  Transmission Date: 20141212
  Serious: Yes (Death)
  Sender: FDA-Public Use
  Company Number: US-GLAXOSMITHKLINE-A1076882A

PATIENT
  Age: 51 Year
  Sex: Female

DRUGS (10)
  1. VOTRIENT [Suspect]
     Indication: PRODUCT USED FOR UNKNOWN INDICATION
     Dosage: 400MG PER DAY
     Route: 048
     Dates: start: 20131005
  2. OMEPRAZOLE [Concomitant]
  3. FENTANYL [Concomitant]
  4. CLONAZEPAM [Concomitant]
  5. ZOFRAN [Concomitant]
  6. GABAPENTIN [Concomitant]
  7. BACLOFEN [Concomitant]
  8. MIRALAX [Concomitant]
  9. COLACE [Concomitant]
  10. SENNA [Concomitant]

REACTIONS (1)
  - Neoplasm malignant [Fatal]
